FAERS Safety Report 8770582 (Version 2)
Quarter: 2012Q4

REPORT INFORMATION
  Report Type: 
  Country: LK (occurrence: LK)
  Receive Date: 20120906
  Receipt Date: 20120921
  Transmission Date: 20130627
  Serious: Yes (Death)
  Sender: FDA-Public Use
  Company Number: PHHY2012LK023643

PATIENT
  Sex: Male

DRUGS (2)
  1. GLIVEC [Suspect]
     Indication: CHRONIC MYELOID LEUKAEMIA
     Dosage: 400 mg, UNK
     Route: 048
  2. GLIVEC [Suspect]
     Dosage: 600 mg, UNK
     Route: 048

REACTIONS (2)
  - Death [Fatal]
  - Full blood count increased [Unknown]
